FAERS Safety Report 12204896 (Version 1)
Quarter: 2016Q1

REPORT INFORMATION
  Report Type: Spontaneous
  Country: US (occurrence: None)
  Receive Date: 20160322
  Receipt Date: 20160322
  Transmission Date: 20160526
  Serious: Yes (Other)
  Sender: FDA-Public Use
  Company Number: None

PATIENT
  Age: 17 Year
  Sex: Female
  Weight: 72.58 kg

DRUGS (1)
  1. CERVIDIL [Suspect]
     Active Substance: DINOPROSTONE
     Indication: INDUCTION OF CERVIX RIPENING
     Dosage: 1 DISK 12 HRS IN PLACE PUT AGAINST CERVIX
     Dates: start: 20160225, end: 20160225

REACTIONS (5)
  - Vulvovaginal erythema [None]
  - Caesarean section [None]
  - Maternal exposure during pregnancy [None]
  - Oedema genital [None]
  - Cervix oedema [None]

NARRATIVE: CASE EVENT DATE: 20160225
